FAERS Safety Report 13838948 (Version 2)
Quarter: 2017Q3

REPORT INFORMATION
  Report Type: Spontaneous
  Country: US (occurrence: US)
  Receive Date: 20170807
  Receipt Date: 20170922
  Transmission Date: 20171127
  Serious: No
  Sender: FDA-Public Use
  Company Number: US-PFIZER INC-2017340561

PATIENT
  Age: 73 Year
  Sex: Female
  Weight: 61.23 kg

DRUGS (2)
  1. EUCRISA [Suspect]
     Active Substance: CRISABOROLE
     Indication: DERMATITIS ATOPIC
  2. EUCRISA [Suspect]
     Active Substance: CRISABOROLE
     Indication: ECZEMA
     Dosage: 2 %, 2X/DAY (APPLY TO ALL ECZEMA AREAS ON FACE, ARMS, AND LEGS TWICE A DAY)
     Route: 061
     Dates: start: 20170727, end: 201707

REACTIONS (3)
  - Burning sensation [Recovering/Resolving]
  - Skin burning sensation [Recovering/Resolving]
  - Dry skin [Recovering/Resolving]

NARRATIVE: CASE EVENT DATE: 20170728
